FAERS Safety Report 7276526-2 (Version None)
Quarter: 2011Q1

REPORT INFORMATION
  Report Type: 
  Country: None (occurrence: None)
  Receive Date: 20110204
  Receipt Date: 20110125
  Transmission Date: 20110831
  Serious: Yes (Other)
  Sender: FDA-Public Use
  Company Number: NL-PFIZER INC-2011005348

PATIENT
  Age: 60 Year
  Sex: Female

DRUGS (1)
  1. PROVERA [Suspect]
     Dosage: 10 MG, 1X/DAY
     Dates: start: 20020101, end: 20100101

REACTIONS (9)
  - INSOMNIA [None]
  - NAUSEA [None]
  - DIABETES MELLITUS [None]
  - HYPERTENSION [None]
  - TINNITUS [None]
  - ANXIETY [None]
  - HEPATIC FAILURE [None]
  - CHEST DISCOMFORT [None]
  - EMOTIONAL DISTRESS [None]
